FAERS Safety Report 7190769-8 (Version None)
Quarter: 2010Q4

REPORT INFORMATION
  Report Type: 
  Country: None (occurrence: None)
  Receive Date: 20101221
  Receipt Date: 20101221
  Transmission Date: 20110411
  Serious: Yes (Hospitalization)
  Sender: FDA-Public Use
  Company Number: None

PATIENT
  Age: 19 Year
  Sex: Female
  Weight: 54.4316 kg

DRUGS (2)
  1. LEXAPRO [Suspect]
     Indication: DEPRESSION
     Dosage: 15MG EVERY DAY PO
     Route: 048
     Dates: start: 20070605, end: 20070615
  2. GEODON [Suspect]
     Indication: BIPOLAR DISORDER
     Dosage: 40MG EVERY DAY PO
     Route: 048
     Dates: start: 20080517, end: 20080717

REACTIONS (6)
  - ADVERSE DRUG REACTION [None]
  - BALANCE DISORDER [None]
  - CONFUSIONAL STATE [None]
  - OVERDOSE [None]
  - PHYSICAL ASSAULT [None]
  - SUICIDAL IDEATION [None]
